FAERS Safety Report 18986667 (Version 2)
Quarter: 2021Q2

REPORT INFORMATION
  Report Type: Spontaneous
  Country: JP (occurrence: JP)
  Receive Date: 20210309
  Receipt Date: 20210624
  Transmission Date: 20210717
  Serious: Yes (Hospitalization, Other)
  Sender: FDA-Public Use
  Company Number: JP-ABBVIE-21K-087-3777613-00

PATIENT
  Age: 38 Year
  Sex: Female
  Weight: 56 kg

DRUGS (8)
  1. FERRIC OXIDE, SACCHARATED [Concomitant]
     Active Substance: IRON SUCROSE
     Indication: SERUM FERRITIN ABNORMAL
     Route: 041
     Dates: start: 20210118, end: 20210210
  2. HUMIRA [Suspect]
     Active Substance: ADALIMUMAB
     Route: 058
     Dates: start: 201710
  3. HUMIRA [Suspect]
     Active Substance: ADALIMUMAB
     Indication: PRODUCT USED FOR UNKNOWN INDICATION
     Route: 058
     Dates: start: 201509
  4. AZATHIOPRINE. [Concomitant]
     Active Substance: AZATHIOPRINE
     Indication: CROHN^S DISEASE
     Route: 048
     Dates: start: 200608
  5. HUMIRA [Suspect]
     Active Substance: ADALIMUMAB
     Indication: CROHN^S DISEASE
     Route: 058
     Dates: end: 20210206
  6. MESALAZINE [Concomitant]
     Active Substance: MESALAMINE
     Indication: CROHN^S DISEASE
     Route: 048
     Dates: start: 200608
  7. ELENTAL [Concomitant]
     Active Substance: AMINO ACIDS\CARBOHYDRATES\MINERALS\SOYBEAN OIL\VITAMINS
     Indication: BLOOD ALBUMIN DECREASED
     Route: 048
     Dates: start: 20210106, end: 20210217
  8. ELENTAL [Concomitant]
     Active Substance: AMINO ACIDS\CARBOHYDRATES\MINERALS\SOYBEAN OIL\VITAMINS
     Indication: CROHN^S DISEASE
     Route: 048

REACTIONS (7)
  - Gestational hypertension [Unknown]
  - Subchorionic haematoma [Unknown]
  - Maternal exposure during pregnancy [Unknown]
  - Premature delivery [Unknown]
  - Premature separation of placenta [Recovered/Resolved]
  - Foetal growth restriction [Unknown]
  - Caesarean section [Unknown]

NARRATIVE: CASE EVENT DATE: 20210217
